FAERS Safety Report 6452762-X (Version None)
Quarter: 2009Q4

REPORT INFORMATION
  Report Type: 
  Country: None (occurrence: None)
  Receive Date: 20091124
  Receipt Date: 20091112
  Transmission Date: 20100525
  Serious: Yes (Other)
  Sender: FDA-Public Use
  Company Number: FR-PFIZER INC-2009296597

PATIENT
  Age: 61 Year
  Sex: Female

DRUGS (1)
  1. VFEND [Suspect]
     Dosage: 2 TABLETS PER DAY
     Dates: start: 20090901

REACTIONS (2)
  - MUSCULOSKELETAL PAIN [None]
  - PARALYSIS [None]
